FAERS Safety Report 11339953 (Version 6)
Quarter: 2017Q1

REPORT INFORMATION
  Report Type: Spontaneous
  Country: JP (occurrence: JP)
  Receive Date: 20150805
  Receipt Date: 20170331
  Transmission Date: 20170428
  Serious: Yes (Hospitalization, Other)
  Sender: FDA-Public Use
  Company Number: JP-PFIZER INC-2015255599

PATIENT
  Age: 57 Year
  Sex: Male
  Weight: 55 kg

DRUGS (4)
  1. HERBAL NOS [Concomitant]
     Active Substance: HERBALS
     Indication: MUSCLE SPASMS
     Dosage: 2.5 G, 2X/DAY
     Route: 048
     Dates: start: 20150213
  2. CELESTAMINE [Concomitant]
     Active Substance: BETAMETHASONE\DEXCHLORPHENIRAMINE MALEATE
     Indication: RASH
     Dosage: 0.5 DF, 4X/DAY
     Route: 048
     Dates: start: 20141202, end: 20150724
  3. BOSULIF [Suspect]
     Active Substance: BOSUTINIB MONOHYDRATE
     Indication: CHRONIC MYELOID LEUKAEMIA
     Dosage: 500 MG, DAILY
     Route: 048
     Dates: start: 20150715, end: 20150728
  4. LOPEMIN [Concomitant]
     Active Substance: LOPERAMIDE HYDROCHLORIDE
     Indication: DIARRHOEA
     Dosage: 1 MG, 2X/DAY
     Route: 048
     Dates: start: 20150508, end: 20150724

REACTIONS (3)
  - Cardiac failure [Recovering/Resolving]
  - Toxic epidermal necrolysis [Recovered/Resolved]
  - Diarrhoea [Recovering/Resolving]

NARRATIVE: CASE EVENT DATE: 20150722
